FAERS Safety Report 5810076-2 (Version None)
Quarter: 2008Q3

REPORT INFORMATION
  Report Type: 
  Country: None (occurrence: None)
  Receive Date: 20080715
  Receipt Date: 20080709
  Transmission Date: 20090109
  Serious: Yes (Hospitalization)
  Sender: FDA-Public Use
  Company Number: B0527912A

PATIENT
  Age: 87 Year
  Sex: Female
  Weight: 64 kg

DRUGS (2)
  1. ARIXTRA [Suspect]
     Dosage: 1.5MG PER DAY
     Route: 058
     Dates: start: 20080620, end: 20080630
  2. METFORMIN [Concomitant]
     Dosage: 850MG TWICE PER DAY

REACTIONS (2)
  - ARTHRALGIA [None]
  - DEEP VEIN THROMBOSIS [None]
